FAERS Safety Report 6528787-2 (Version None)
Quarter: 2010Q1

REPORT INFORMATION
  Report Type: 
  Country: None (occurrence: None)
  Receive Date: 20100106
  Receipt Date: 20091224
  Transmission Date: 20100710
  Serious: Yes (Hospitalization, Other)
  Sender: FDA-Public Use
  Company Number: PHHY2009AU58732

PATIENT
  Sex: Female

DRUGS (1)
  1. CLOZARIL [Suspect]
     Dosage: UNK
     Dates: start: 19990115, end: 20091223

REACTIONS (4)
  - ABDOMINAL PAIN [None]
  - NEUTROPHIL COUNT DECREASED [None]
  - PSYCHOSOMATIC DISEASE [None]
  - WHITE BLOOD CELL COUNT DECREASED [None]
